FAERS Safety Report 26043328 (Version 1)
Quarter: 2025Q4

REPORT INFORMATION
  Report Type: Report from Study
  Country: BR (occurrence: BR)
  Receive Date: 20251113
  Receipt Date: 20251113
  Transmission Date: 20260117
  Serious: No
  Sender: BIOGEN
  Company Number: BR-BIOGEN-2090379

PATIENT
  Age: 38 Year
  Sex: Female

DRUGS (1)
  1. TYSABRI [Suspect]
     Active Substance: NATALIZUMAB
     Indication: Multiple sclerosis
     Dates: start: 2023

REACTIONS (2)
  - Contrast media allergy [Unknown]
  - Cough [Recovering/Resolving]
